FAERS Safety Report 8203268-9 (Version None)
Quarter: 2012Q1

REPORT INFORMATION
  Report Type: 
  Country: None (occurrence: None)
  Receive Date: 20120312
  Receipt Date: 20120301
  Transmission Date: 20120608
  Serious: Yes (Other)
  Sender: FDA-Public Use
  Company Number: US-ASTRAZENECA-2012SE15296

PATIENT
  Sex: Male

DRUGS (2)
  1. ATACAND [Suspect]
     Route: 048
  2. NEXIUM [Suspect]
     Route: 048

REACTIONS (9)
  - INTERVERTEBRAL DISC PROTRUSION [None]
  - THYROID NEOPLASM [None]
  - WEIGHT DECREASED [None]
  - NEURITIS [None]
  - HIATUS HERNIA [None]
  - CERVICOBRACHIAL SYNDROME [None]
  - GASTRIC BANDING [None]
  - ROAD TRAFFIC ACCIDENT [None]
  - POST-TRAUMATIC NECK SYNDROME [None]
